FAERS Safety Report 8388847-0 (Version None)
Quarter: 2012Q2

REPORT INFORMATION
  Report Type: 
  Country: None (occurrence: None)
  Receive Date: 20120528
  Receipt Date: 20120514
  Transmission Date: 20120825
  Serious: Yes (Hospitalization, Other)
  Sender: FDA-Public Use
  Company Number: NO-BIOGENIDEC-2012BI018427

PATIENT
  Age: 69 Year
  Sex: Male

DRUGS (3)
  1. TYSABRI [Suspect]
     Indication: RELAPSING-REMITTING MULTIPLE SCLEROSIS
     Route: 042
     Dates: start: 20080910
  2. FAMPYRA [Concomitant]
     Dates: start: 20120131
  3. RAMIPRIL [Concomitant]
     Indication: HYPERTENSION
     Dates: start: 20060426

REACTIONS (1)
  - ATRIAL FIBRILLATION [None]
